FAERS Safety Report 23604287 (Version 1)
Quarter: 2024Q1

REPORT INFORMATION
  Report Type: Report from Study
  Country: US (occurrence: US)
  Receive Date: 20240307
  Receipt Date: 20240307
  Transmission Date: 20240410
  Serious: Yes (Other)
  Sender: FDA-Public Use
  Company Number: US-ABBVIE-4299831

PATIENT
  Sex: Female

DRUGS (1)
  1. HUMIRA [Suspect]
     Active Substance: ADALIMUMAB
     Indication: Crohn^s disease
     Dosage: CITRATE FREE?FORM STRENGTH: 40 MILLIGRAM
     Route: 058

REACTIONS (6)
  - Obstruction gastric [Unknown]
  - Decreased appetite [Recovering/Resolving]
  - Pain [Unknown]
  - Frustration tolerance decreased [Unknown]
  - Illness [Unknown]
  - Asthenia [Recovering/Resolving]
